FAERS Safety Report 5083735-X (Version None)
Quarter: 2006Q3

REPORT INFORMATION
  Report Type: 
  Country: None (occurrence: None)
  Receive Date: 20060818
  Receipt Date: 20060808
  Transmission Date: 20061208
  Serious: Yes (Hospitalization)
  Sender: FDA-Public Use
  Company Number: FR-ROCHE-458991

PATIENT
  Age: 44 Year
  Sex: Male

DRUGS (4)
  1. FUZEON [Suspect]
     Indication: DRUG USE FOR UNKNOWN INDICATION
     Route: 058
     Dates: start: 20051116, end: 20060523
  2. TIPRANAVIR [Suspect]
     Route: 048
     Dates: start: 20051213, end: 20060523
  3. COMBIVIR [Suspect]
     Route: 048
     Dates: start: 20051116, end: 20060523
  4. NORVIR [Suspect]
     Route: 048
     Dates: start: 20051213, end: 20060523

REACTIONS (3)
  - HEPATITIS CHOLESTATIC [None]
  - HEPATOSPLENOMEGALY [None]
  - HYPERBILIRUBINAEMIA [None]
